FAERS Safety Report 21239220 (Version 1)
Quarter: 2022Q3

REPORT INFORMATION
  Report Type: Spontaneous
  Country: US (occurrence: None)
  Receive Date: 20220819
  Receipt Date: 20220819
  Transmission Date: 20221027
  Serious: Yes (Hospitalization, Disabling)
  Sender: FDA-Public Use
  Company Number: None

PATIENT
  Age: 68 Year
  Sex: Female
  Weight: 74 kg

DRUGS (6)
  1. RECLAST [Suspect]
     Active Substance: ZOLEDRONIC ACID
     Dates: start: 20220706, end: 20220706
  2. ANASTROZOLE [Concomitant]
     Active Substance: ANASTROZOLE
     Dates: start: 20201014
  3. AMLODIPINE [Concomitant]
     Active Substance: AMLODIPINE BESYLATE
     Dates: start: 20220117
  4. ROSUVASTATIN [Concomitant]
     Active Substance: ROSUVASTATIN
     Dates: start: 20201223
  5. ATENOLOL [Concomitant]
     Active Substance: ATENOLOL
     Dates: start: 20201230
  6. FAMOTIDINE [Concomitant]
     Active Substance: FAMOTIDINE
     Dates: start: 20210318

REACTIONS (15)
  - Confusional state [None]
  - Lethargy [None]
  - Heart rate decreased [None]
  - Blood glucose increased [None]
  - Blood urea increased [None]
  - Blood creatinine increased [None]
  - Blood potassium increased [None]
  - Blood magnesium increased [None]
  - Anion gap increased [None]
  - Blood calcium decreased [None]
  - Blood lactic acid increased [None]
  - N-terminal prohormone brain natriuretic peptide increased [None]
  - Blood chloride decreased [None]
  - Carbon dioxide decreased [None]
  - Blood sodium decreased [None]

NARRATIVE: CASE EVENT DATE: 20220726
